FAERS Safety Report 13898884 (Version 3)
Quarter: 2019Q1

REPORT INFORMATION
  Report Type: Report from Study
  Country: US (occurrence: US)
  Receive Date: 20170823
  Receipt Date: 20190304
  Transmission Date: 20190417
  Serious: Yes (Congenital Anomaly, Other)
  Sender: FDA-Public Use
  Company Number: US-GILEAD-2017-0289248

PATIENT
  Age: 0 Year
  Sex: Female
  Weight: 3.53 kg

DRUGS (5)
  1. ATAZANAVIR SULFATE. [Suspect]
     Active Substance: ATAZANAVIR SULFATE
     Indication: HIV INFECTION
     Dosage: 300 MG, QD
     Route: 064
     Dates: start: 20150511, end: 20150615
  2. ATAZANAVIR SULFATE. [Suspect]
     Active Substance: ATAZANAVIR SULFATE
     Dosage: 400 MG, QD
     Route: 064
     Dates: start: 20150615, end: 20151112
  3. FOLATE [Suspect]
     Active Substance: FOLATE SODIUM
     Indication: PRODUCT USED FOR UNKNOWN INDICATION
     Dosage: UNK
     Route: 064
  4. EMTRICITABINE/TENOFOVIR DISOPROXIL FUMARATE [Suspect]
     Active Substance: EMTRICITABINE\TENOFOVIR DISOPROXIL FUMARATE
     Indication: HIV INFECTION
     Dosage: 1 DF, QD
     Route: 064
     Dates: start: 20150511, end: 20151112
  5. RITONAVIR. [Suspect]
     Active Substance: RITONAVIR
     Indication: HIV INFECTION
     Dosage: 100 MG, QD
     Route: 064
     Dates: start: 20150511, end: 20151112

REACTIONS (5)
  - Kidney malrotation [Recovered/Resolved]
  - Diaphragmatic hernia [Recovered/Resolved]
  - Polydactyly [Recovered/Resolved]
  - Foetal exposure during pregnancy [Recovered/Resolved]
  - Intestinal malrotation [Recovered/Resolved]

NARRATIVE: CASE EVENT DATE: 20150511
